FAERS Safety Report 24791169 (Version 1)
Quarter: 2024Q4

REPORT INFORMATION
  Report Type: Spontaneous
  Country: US (occurrence: US)
  Receive Date: 20241230
  Receipt Date: 20241230
  Transmission Date: 20250115
  Serious: No
  Sender: CIPLA
  Company Number: US-CIPLA LTD.-2024US06324

PATIENT

DRUGS (3)
  1. BUDESONIDE [Suspect]
     Active Substance: BUDESONIDE
     Indication: Product used for unknown indication
     Dosage: UNK (2 BOXES OF THIS MEDICATION BEFORE), STRENGTH: 0.5MG/2ML
  2. BUDESONIDE [Suspect]
     Active Substance: BUDESONIDE
     Dosage: 1 DOSAGE FORM, BID (1 RESPULE), STRENGTH: 0.5MG /2 ML
     Dates: start: 20240610
  3. BUDESONIDE [Suspect]
     Active Substance: BUDESONIDE
     Dosage: UNK, STRENGTH: 0.5MG/2ML
     Dates: start: 202406

REACTIONS (3)
  - Burning sensation [Unknown]
  - Liquid product physical issue [Unknown]
  - Product quality issue [Unknown]

NARRATIVE: CASE EVENT DATE: 20240610
